FAERS Safety Report 19502263 (Version 1)
Quarter: 2021Q3

REPORT INFORMATION
  Report Type: Spontaneous
  Country: US (occurrence: US)
  Receive Date: 20210707
  Receipt Date: 20210707
  Transmission Date: 20211014
  Serious: Yes (Hospitalization)
  Sender: FDA-Public Use
  Company Number: None

PATIENT
  Age: 23 Year
  Sex: Male
  Weight: 68.7 kg

DRUGS (2)
  1. CYCLOPHOSPHAMIDE. [Suspect]
     Active Substance: CYCLOPHOSPHAMIDE
     Dates: end: 20210601
  2. THIOGUANINE (6?TG) [Suspect]
     Active Substance: THIOGUANINE ANHYDROUS
     Dates: end: 20210613

REACTIONS (9)
  - Tachycardia [None]
  - Pulmonary mass [None]
  - Pneumonia fungal [None]
  - Fusobacterium test positive [None]
  - Platelet count decreased [None]
  - Blood culture positive [None]
  - Haemoglobin decreased [None]
  - Leptotrichia infection [None]
  - Febrile neutropenia [None]

NARRATIVE: CASE EVENT DATE: 20210623
